FAERS Safety Report 4979024-1 (Version None)
Quarter: 2006Q2

REPORT INFORMATION
  Report Type: 
  Country: None (occurrence: None)
  Receive Date: 20060419
  Receipt Date: 20060419
  Transmission Date: 20061013
  Serious: Yes (Disabling, Other)
  Sender: FDA-Public Use
  Company Number: None

PATIENT
  Age: 41 Year
  Sex: Female
  Weight: 72.1219 kg

DRUGS (1)
  1. NORTREL 7/7/7 [Suspect]
     Indication: CONTRACEPTION
     Dosage: 1 TABLET BY MOUTH EVERYDAY PO
     Route: 048
     Dates: start: 20060225, end: 20060402

REACTIONS (1)
  - ALOPECIA [None]
